FAERS Safety Report 8152138-3 (Version None)
Quarter: 2012Q1

REPORT INFORMATION
  Report Type: 
  Country: None (occurrence: None)
  Receive Date: 20120215
  Receipt Date: 20120215
  Transmission Date: 20120608
  Serious: No
  Sender: FDA-Public Use
  Company Number: None

PATIENT
  Sex: Male
  Weight: 93 kg

DRUGS (2)
  1. TADALAFIL [Suspect]
     Dosage: 60 MG
  2. HYDROCHLOROTHIAZIDE [Concomitant]

REACTIONS (1)
  - SYNCOPE [None]
